FAERS Safety Report 24717098 (Version 1)
Quarter: 2024Q4

REPORT INFORMATION
  Report Type: Spontaneous
  Country: CO (occurrence: CO)
  Receive Date: 20241210
  Receipt Date: 20241210
  Transmission Date: 20250115
  Serious: Yes (Hospitalization)
  Sender: VERTEX
  Company Number: CO-VERTEX PHARMACEUTICALS-2024-019099

PATIENT

DRUGS (1)
  1. SYMDEKO [Suspect]
     Active Substance: IVACAFTOR\TEZACAFTOR
     Indication: Cystic fibrosis
     Dosage: TEZACAFTOR/IVACAFTOR AND IVACAFTOR
     Route: 048

REACTIONS (1)
  - Hospitalisation [Unknown]
